FAERS Safety Report 6586385-9 (Version None)
Quarter: 2010Q1

REPORT INFORMATION
  Report Type: 
  Country: None (occurrence: None)
  Receive Date: 20100217
  Receipt Date: 20090311
  Transmission Date: 20100710
  Serious: No
  Sender: FDA-Public Use
  Company Number: US-ALLERGAN-0902565US

PATIENT
  Sex: Male

DRUGS (2)
  1. BOTOX COSMETIC [Suspect]
     Indication: SKIN WRINKLING
     Dosage: 24 UNITS, SINGLE
     Route: 030
     Dates: start: 20090217, end: 20090217
  2. BOTOX COSMETIC [Suspect]
     Dosage: UNK, SINGLE
     Route: 030

REACTIONS (3)
  - INJECTION SITE PRURITUS [None]
  - INJECTION SITE RASH [None]
  - WRONG TECHNIQUE IN DRUG USAGE PROCESS [None]
